FAERS Safety Report 6017826-3 (Version None)
Quarter: 2008Q4

REPORT INFORMATION
  Report Type: 
  Country: None (occurrence: None)
  Receive Date: 20081223
  Receipt Date: 20081212
  Transmission Date: 20090506
  Serious: Yes (Other)
  Sender: FDA-Public Use
  Company Number: CH-ROCHE-603192

PATIENT
  Age: 59 Year
  Sex: Female

DRUGS (2)
  1. COPEGUS [Suspect]
     Route: 048
     Dates: start: 20081003
  2. PEGASYS [Suspect]
     Route: 051
     Dates: start: 20081003

REACTIONS (1)
  - THROMBOSIS [None]
